FAERS Safety Report 20898475 (Version 1)
Quarter: 2022Q2

REPORT INFORMATION
  Report Type: Spontaneous
  Country: CN (occurrence: CN)
  Receive Date: 20220601
  Receipt Date: 20220601
  Transmission Date: 20220721
  Serious: Yes (Hospitalization)
  Sender: FDA-Public Use
  Company Number: None

PATIENT
  Age: 41 Year
  Sex: Male
  Weight: 65 kg

DRUGS (2)
  1. OLANZAPINE [Suspect]
     Active Substance: OLANZAPINE
     Indication: Schizophrenia
     Dosage: 10MG,BID
     Route: 048
     Dates: start: 20210809, end: 20220510
  2. RISPERIDONE [Concomitant]
     Active Substance: RISPERIDONE
     Indication: Schizophrenia
     Dosage: 1MG,QD
     Route: 048
     Dates: start: 20211214, end: 20220510

REACTIONS (3)
  - Electrolyte imbalance [Unknown]
  - Upper gastrointestinal haemorrhage [Unknown]
  - Epilepsy [Unknown]

NARRATIVE: CASE EVENT DATE: 20220510
